FAERS Safety Report 12945188 (Version 1)
Quarter: 2016Q4

REPORT INFORMATION
  Report Type: Spontaneous
  Country: US (occurrence: US)
  Receive Date: 20161115
  Receipt Date: 20161115
  Transmission Date: 20170207
  Serious: Yes (Other)
  Sender: FDA-Public Use
  Company Number: None

PATIENT
  Age: 64 Year
  Sex: Female
  Weight: 105 kg

DRUGS (11)
  1. MAGNESIUM CITRAMATE [Concomitant]
  2. SUMATRIPTAN INJECTION 6 MG/.5ML [Suspect]
     Active Substance: SUMATRIPTAN
     Indication: HEADACHE
     Dosage: ?          QUANTITY:1 INJECTION(S);?
     Route: 058
     Dates: start: 20160926, end: 20160926
  3. PROGESTERONE. [Concomitant]
     Active Substance: PROGESTERONE
  4. CRANBERRY CHEWABLES [Concomitant]
  5. SUMATRIPTAN INJECTION 6 MG/.5ML [Suspect]
     Active Substance: SUMATRIPTAN
     Indication: SURGERY
     Dosage: ?          QUANTITY:1 INJECTION(S);?
     Route: 058
     Dates: start: 20160926, end: 20160926
  6. FENTANYL. [Concomitant]
     Active Substance: FENTANYL
  7. SUMATRIPTAN INJECTION 6 MG/.5ML [Suspect]
     Active Substance: SUMATRIPTAN
     Indication: SPINAL DISORDER
     Dosage: ?          QUANTITY:1 INJECTION(S);?
     Route: 058
     Dates: start: 20160926, end: 20160926
  8. ACIPHEX [Concomitant]
     Active Substance: RABEPRAZOLE SODIUM
  9. ESTRADIOL. [Concomitant]
     Active Substance: ESTRADIOL
  10. EXCEDRIN MIGRAINE [Concomitant]
     Active Substance: ACETAMINOPHEN\ASPIRIN\CAFFEINE
  11. DHEA [Concomitant]
     Active Substance: PRASTERONE

REACTIONS (8)
  - Headache [None]
  - Dizziness [None]
  - Device malfunction [None]
  - Pharyngeal oedema [None]
  - Paranasal sinus discomfort [None]
  - Head discomfort [None]
  - Product substitution issue [None]
  - Needle issue [None]

NARRATIVE: CASE EVENT DATE: 20160926
